FAERS Safety Report 16229760 (Version 1)
Quarter: 2019Q2

REPORT INFORMATION
  Report Type: Spontaneous
  Country: CH (occurrence: CH)
  Receive Date: 20190423
  Receipt Date: 20190423
  Transmission Date: 20190711
  Serious: Yes (Other)
  Sender: FDA-Public Use
  Company Number: CH-PFIZER INC-2019163745

PATIENT
  Age: 26 Year
  Sex: Male
  Weight: 80 kg

DRUGS (7)
  1. PROGRAF [Suspect]
     Active Substance: TACROLIMUS\TACROLIMUS ANHYDROUS
     Indication: ALLOGENIC STEM CELL TRANSPLANTATION
     Dosage: UNK
  2. URSOFALK [Concomitant]
     Active Substance: URSODIOL
     Dosage: 250 MG, UNK
  3. BUDENOFALK [Concomitant]
     Active Substance: BUDESONIDE
     Dosage: 3 MG, UNK
     Dates: start: 20180118
  4. SOLU-MEDROL [Suspect]
     Active Substance: METHYLPREDNISOLONE SODIUM SUCCINATE
     Indication: GRAFT VERSUS HOST DISEASE
     Dosage: 125 UG, UNK (TAPERING OF THE DRUG OVER 4 WEEKS;
     Dates: start: 20190118
  5. FOSCAVIR [Suspect]
     Active Substance: FOSCARNET SODIUM
     Dosage: 6 G, UNK
     Route: 042
     Dates: start: 20190214, end: 20190221
  6. CYMEVENE [GANCICLOVIR SODIUM] [Concomitant]
     Active Substance: GANCICLOVIR SODIUM
     Dosage: 400 MG, UNK
     Dates: start: 20190131, end: 20190213
  7. RUXOLITINIB [Suspect]
     Active Substance: RUXOLITINIB
     Dosage: UNK

REACTIONS (1)
  - Cystitis haemorrhagic [Not Recovered/Not Resolved]

NARRATIVE: CASE EVENT DATE: 20190216
